FAERS Safety Report 5372058-7 (Version None)
Quarter: 2007Q2

REPORT INFORMATION
  Report Type: 
  Country: None (occurrence: None)
  Receive Date: 20070627
  Receipt Date: 20070615
  Transmission Date: 20071010
  Serious: Yes (Other)
  Sender: FDA-Public Use
  Company Number: JP-ROCHE-499405

PATIENT
  Age: 37 Year
  Sex: Female
  Weight: 53 kg

DRUGS (3)
  1. TAMIFLU [Suspect]
     Route: 048
     Dates: start: 20070430, end: 20070430
  2. VOLTAREN [Concomitant]
     Route: 048
     Dates: start: 20070430, end: 20070510
  3. CODEINE PHOSPHATE [Concomitant]
     Route: 048
     Dates: start: 20070430, end: 20070507

REACTIONS (2)
  - GENERALISED ERYTHEMA [None]
  - GENERALISED OEDEMA [None]
